FAERS Safety Report 5818995-8 (Version None)
Quarter: 2008Q3

REPORT INFORMATION
  Report Type: 
  Country: None (occurrence: None)
  Receive Date: 20080723
  Receipt Date: 20080714
  Transmission Date: 20090109
  Serious: Yes (Disabling)
  Sender: FDA-Public Use
  Company Number: PL-AVENTIS-200816659GDDC

PATIENT
  Age: 33 Year
  Sex: Female
  Weight: 75 kg

DRUGS (4)
  1. TELFAST                            /01314201/ [Suspect]
     Route: 048
     Dates: start: 20080627, end: 20080628
  2. FLONIDAN [Suspect]
     Route: 048
     Dates: start: 20080627, end: 20080628
  3. LOKREN [Concomitant]
  4. TULIP [Concomitant]

REACTIONS (3)
  - ATAXIA [None]
  - DIPLOPIA [None]
  - VERTIGO [None]
